FAERS Safety Report 6156167-0 (Version None)
Quarter: 2009Q2

REPORT INFORMATION
  Report Type: 
  Country: None (occurrence: None)
  Receive Date: 20090415
  Receipt Date: 20090410
  Transmission Date: 20091009
  Serious: No
  Sender: FDA-Public Use
  Company Number: US-B.I. PHARMACEUTICALS,INC./RIDGEFIELD-2009-BP-03408BP

PATIENT
  Sex: Female

DRUGS (10)
  1. SPIRIVA [Suspect]
     Indication: CHRONIC OBSTRUCTIVE PULMONARY DISEASE
     Dosage: 18MCG
     Route: 055
     Dates: start: 20050101
  2. SPIRIVA [Suspect]
     Indication: EMPHYSEMA
  3. SPIRIVA [Suspect]
     Indication: DYSPNOEA
  4. ALBUTEROL [Concomitant]
     Indication: CHRONIC OBSTRUCTIVE PULMONARY DISEASE
     Route: 055
  5. OXYCODONE HCL [Concomitant]
     Indication: BACK PAIN
     Route: 048
     Dates: start: 20040101
  6. BUTALBITAL APAP [Concomitant]
     Indication: BACK PAIN
     Route: 048
     Dates: start: 20040101
  7. SEROQUEL [Concomitant]
     Indication: BACK PAIN
     Dosage: 300MG
     Route: 048
  8. NEURONTIN [Concomitant]
     Indication: BACK PAIN
     Dosage: 900MG
     Route: 048
     Dates: start: 20040101
  9. LORAZEPAM [Concomitant]
  10. PROAIR HFA [Concomitant]

REACTIONS (2)
  - DRUG INEFFECTIVE [None]
  - OROPHARYNGEAL PAIN [None]
